FAERS Safety Report 14412445 (Version 1)
Quarter: 2018Q1

REPORT INFORMATION
  Report Type: Report from Study
  Country: FR (occurrence: FR)
  Receive Date: 20180119
  Receipt Date: 20180119
  Transmission Date: 20180509
  Serious: Yes (Death)
  Sender: FDA-Public Use
  Company Number: FR-SEATTLE GENETICS-2016SGN02077

PATIENT
  Age: 47 Year
  Sex: Male
  Weight: 103 kg

DRUGS (5)
  1. BRENTUXIMAB VEDOTIN [Suspect]
     Active Substance: BRENTUXIMAB VEDOTIN
     Indication: PERIPHERAL T-CELL LYMPHOMA UNSPECIFIED
     Dosage: 170 MG, UNK
     Route: 065
     Dates: start: 20160502, end: 20160502
  2. BENDAMUSTINE [Concomitant]
     Active Substance: BENDAMUSTINE
     Dosage: UNK
     Route: 065
  3. OXALIPLATIN. [Concomitant]
     Active Substance: OXALIPLATIN
     Dosage: UNK
     Route: 065
     Dates: start: 20160816, end: 20161026
  4. BENDAMUSTINE [Concomitant]
     Active Substance: BENDAMUSTINE
     Dosage: UNK
     Route: 065
  5. CYTARABINE. [Concomitant]
     Active Substance: CYTARABINE
     Dosage: UNK
     Route: 065
     Dates: start: 20160816, end: 20161026

REACTIONS (5)
  - Weight decreased [Unknown]
  - Off label use [Unknown]
  - Adverse event [Unknown]
  - Pneumocystis jirovecii pneumonia [Fatal]
  - Dyspnoea [Fatal]

NARRATIVE: CASE EVENT DATE: 2017
